FAERS Safety Report 5692579-7 (Version None)
Quarter: 2008Q2

REPORT INFORMATION
  Report Type: 
  Country: None (occurrence: None)
  Receive Date: 20080401
  Receipt Date: 20080326
  Transmission Date: 20081010
  Serious: Yes (Hospitalization)
  Sender: FDA-Public Use
  Company Number: 2008SP003219

PATIENT
  Age: 51 Year
  Sex: Male
  Weight: 78.0187 kg

DRUGS (2)
  1. PEG-INTRON [Suspect]
     Indication: HEPATITIS C
     Dosage: ;SC
     Route: 058
     Dates: start: 20071214, end: 20080104
  2. RIBAVIRIN [Suspect]
     Indication: HEPATITIS C
     Dosage: ;PO
     Route: 048
     Dates: start: 20071214, end: 20080104

REACTIONS (11)
  - ALCOHOL USE [None]
  - ANXIETY [None]
  - BLOOD PRESSURE DECREASED [None]
  - DEHYDRATION [None]
  - DRUG SCREEN POSITIVE [None]
  - EATING DISORDER [None]
  - FALL [None]
  - HEART RATE DECREASED [None]
  - ILL-DEFINED DISORDER [None]
  - SYNCOPE [None]
  - WEIGHT DECREASED [None]
